FAERS Safety Report 10214432 (Version 1)
Quarter: 2014Q2

REPORT INFORMATION
  Report Type: Spontaneous
  Country: GB (occurrence: GB)
  Receive Date: 20140603
  Receipt Date: 20140603
  Transmission Date: 20141212
  Serious: Yes (Other)
  Sender: FDA-Public Use
  Company Number: GB-BAYER-2014-081190

PATIENT
  Sex: Female

DRUGS (2)
  1. CANESTEN COMBI 500MG PESSARY + 2% CREAM [Suspect]
     Indication: CANDIDA INFECTION
     Dosage: UNK
  2. CANESTEN COMBI 500MG PESSARY + 2% CREAM [Suspect]
     Dosage: UNK

REACTIONS (1)
  - Haemorrhage [None]
